FAERS Safety Report 14329522 (Version 2)
Quarter: 2018Q2

REPORT INFORMATION
  Report Type: Spontaneous
  Country: JP (occurrence: JP)
  Receive Date: 20171227
  Receipt Date: 20180528
  Transmission Date: 20180711
  Serious: Yes (Disabling, Other)
  Sender: FDA-Public Use
  Company Number: JP-009507513-1705JPN001427J

PATIENT
  Age: 60 Year
  Sex: Female
  Weight: 47 kg

DRUGS (1)
  1. KEYTRUDA [Suspect]
     Active Substance: PEMBROLIZUMAB
     Indication: LUNG ADENOCARCINOMA
     Dosage: 200 MG, Q3W
     Route: 041
     Dates: start: 20170509, end: 20170823

REACTIONS (5)
  - Adrenal insufficiency [Recovered/Resolved]
  - Haemoptysis [Unknown]
  - Tumour associated fever [Recovering/Resolving]
  - Hypothalamo-pituitary disorder [Recovered/Resolved]
  - Rash [Not Recovered/Not Resolved]

NARRATIVE: CASE EVENT DATE: 20170509
